FAERS Safety Report 6437578-2 (Version None)
Quarter: 2009Q4

REPORT INFORMATION
  Report Type: 
  Country: None (occurrence: None)
  Receive Date: 20091109
  Receipt Date: 20091022
  Transmission Date: 20100525
  Serious: Yes (Life-Threatening, Hospitalization)
  Sender: FDA-Public Use
  Company Number: 1000009817

PATIENT
  Age: 57 Year
  Sex: Male

DRUGS (10)
  1. ESCITALOPRAM [Suspect]
     Dosage: ORAL
     Route: 048
     Dates: end: 20090915
  2. SITAGLIPTIN (TABLETS) [Suspect]
     Indication: TYPE 2 DIABETES MELLITUS
     Dosage: 100 MG (100 MG, 1 IN 1 D), ORAL
     Route: 048
     Dates: start: 20090801, end: 20090915
  3. METFORMIN HCL [Suspect]
     Indication: TYPE 2 DIABETES MELLITUS
     Dosage: 3000 MG (1000 MG, 3 IN 1 D), ORAL
     Route: 048
     Dates: start: 20090701, end: 20090915
  4. COAPROVEL (TABLETS) [Suspect]
     Indication: HYPERTENSION
     Dosage: 150/12.5 MG DAILY, ORAL
     Route: 048
     Dates: end: 20090915
  5. ESOMEPRAZOLE [Concomitant]
  6. RIVOTRIL [Concomitant]
  7. DIFFU-K [Concomitant]
  8. SECALIP [Concomitant]
  9. NOCTRAN [Concomitant]
  10. ALPRAZOLAM [Concomitant]

REACTIONS (9)
  - ASTHENIA [None]
  - DIARRHOEA [None]
  - ELECTROCARDIOGRAM ABNORMAL [None]
  - HAEMODIALYSIS [None]
  - HYPERKALAEMIA [None]
  - MUSCLE SPASMS [None]
  - NAUSEA [None]
  - RENAL FAILURE ACUTE [None]
  - VOMITING [None]
